FAERS Safety Report 7949739-1 (Version None)
Quarter: 2011Q4

REPORT INFORMATION
  Report Type: 
  Country: None (occurrence: None)
  Receive Date: 20111130
  Receipt Date: 20111122
  Transmission Date: 20120403
  Serious: Yes (Other)
  Sender: FDA-Public Use
  Company Number: US-PFIZER INC-US-WYE-H17844510

PATIENT
  Sex: Female
  Weight: 147 kg

DRUGS (18)
  1. ZYPREXA [Suspect]
     Indication: ANXIETY
  2. EFFEXOR XR [Suspect]
     Indication: ANXIETY
  3. ZOLOFT [Suspect]
     Indication: MAJOR DEPRESSION
  4. ZOLOFT [Suspect]
     Indication: ANXIETY
  5. GEODON [Suspect]
     Indication: BIPOLAR DISORDER
     Dosage: UNK
  6. VENLAFAXINE HCL [Suspect]
     Indication: MAJOR DEPRESSION
  7. GEODON [Suspect]
     Indication: ANXIETY
  8. EFFEXOR XR [Suspect]
     Indication: BIPOLAR DISORDER
     Dosage: 150 MG, 1X/DAY
     Route: 048
     Dates: end: 20100701
  9. ZOLOFT [Suspect]
     Indication: BIPOLAR DISORDER
     Dosage: UNK
  10. GEODON [Suspect]
     Indication: MAJOR DEPRESSION
  11. EFFEXOR XR [Suspect]
     Indication: MAJOR DEPRESSION
     Dosage: 150 MG, 1X/DAY
     Route: 048
  12. ZYPREXA [Suspect]
     Indication: MAJOR DEPRESSION
  13. TOPAMAX [Suspect]
     Indication: ANXIETY
  14. ZYPREXA [Suspect]
     Indication: BIPOLAR DISORDER
     Dosage: UNK
  15. TOPAMAX [Suspect]
     Indication: MAJOR DEPRESSION
  16. VENLAFAXINE HCL [Suspect]
     Indication: BIPOLAR DISORDER
     Dosage: UNK
     Dates: start: 20100701
  17. VENLAFAXINE HCL [Suspect]
     Indication: ANXIETY
  18. TOPAMAX [Suspect]
     Indication: BIPOLAR DISORDER
     Dosage: UNK

REACTIONS (19)
  - THINKING ABNORMAL [None]
  - HUNGER [None]
  - BLOOD GLUCOSE INCREASED [None]
  - DIZZINESS [None]
  - MEMORY IMPAIRMENT [None]
  - CONSTIPATION [None]
  - DRY MOUTH [None]
  - FORMICATION [None]
  - ANHEDONIA [None]
  - SKIN ODOUR ABNORMAL [None]
  - PRODUCT SUBSTITUTION ISSUE [None]
  - PAIN [None]
  - VITAMIN D DECREASED [None]
  - DEPRESSION [None]
  - THIRST [None]
  - JOINT SWELLING [None]
  - FEELING ABNORMAL [None]
  - OEDEMA PERIPHERAL [None]
  - ANXIETY [None]
